FAERS Safety Report 18975334 (Version 1)
Quarter: 2021Q1

REPORT INFORMATION
  Report Type: Spontaneous
  Country: IN (occurrence: IN)
  Receive Date: 20210305
  Receipt Date: 20210305
  Transmission Date: 20210420
  Serious: Yes (Life-Threatening, Hospitalization, Other)
  Sender: FDA-Public Use
  Company Number: IN-STRIDES ARCOLAB LIMITED-2021SP002649

PATIENT
  Age: 23 Year
  Sex: Female

DRUGS (3)
  1. MESALAZINE [Concomitant]
     Active Substance: MESALAMINE
     Indication: COLITIS ULCERATIVE
     Dosage: 2.4 GRAM PER DAY
     Route: 065
  2. MESALAZINE [Concomitant]
     Active Substance: MESALAMINE
     Dosage: 1.2 GRAM (TWO TABLETS IN THE MORNING AND ONE TABLET IN THE EVENING)
     Route: 065
  3. PREDNISOLONE. [Suspect]
     Active Substance: PREDNISOLONE
     Indication: COLITIS ULCERATIVE
     Dosage: 40 MILLIGRAM PER DAY
     Route: 065

REACTIONS (4)
  - Cardiac ventricular thrombosis [Recovered/Resolved]
  - Cerebral infarction [Recovered/Resolved]
  - Embolic stroke [Recovered/Resolved]
  - Transient ischaemic attack [Recovered/Resolved]
